FAERS Safety Report 7088615-6 (Version None)
Quarter: 2010Q4

REPORT INFORMATION
  Report Type: 
  Country: None (occurrence: None)
  Receive Date: 20101029
  Receipt Date: 20101028
  Transmission Date: 20110411
  Serious: Yes (Disabling, Other)
  Sender: FDA-Public Use
  Company Number: 1022556-2010-00064

PATIENT
  Sex: Male

DRUGS (1)
  1. ICY HOT BALM 3.5 OZ. [Suspect]
     Indication: MYALGIA
     Dosage: TOPICAL
     Route: 061

REACTIONS (2)
  - SKIN EXFOLIATION [None]
  - THERMAL BURN [None]
